FAERS Safety Report 8973174 (Version 1)
Quarter: 2012Q4

REPORT INFORMATION
  Report Type: 
  Country: CA (occurrence: CA)
  Receive Date: 20121218
  Receipt Date: 20121218
  Transmission Date: 20130627
  Serious: No
  Sender: FDA-Public Use
  Company Number: CA-ROCHE-GNE291558

PATIENT
  Age: 32 Year
  Sex: Female
  Weight: 69.92 kg

DRUGS (2)
  1. OMALIZUMAB [Suspect]
     Indication: ASTHMA
     Route: 058
     Dates: start: 20050112
  2. OMALIZUMAB [Suspect]
     Dosage: 150 mg, 1/Month
     Route: 058
     Dates: start: 20051207

REACTIONS (9)
  - Dyspnoea [Not Recovered/Not Resolved]
  - Sinusitis [Unknown]
  - Laryngitis [Unknown]
  - Asthma [Unknown]
  - Pain [Not Recovered/Not Resolved]
  - Pyrexia [Unknown]
  - Sinus congestion [Not Recovered/Not Resolved]
  - Hypersensitivity [Unknown]
  - Influenza [Unknown]
